FAERS Safety Report 10997450 (Version 1)
Quarter: 2015Q2

REPORT INFORMATION
  Report Type: Spontaneous
  Country: US (occurrence: US)
  Receive Date: 20150408
  Receipt Date: 20150408
  Transmission Date: 20150821
  Serious: No
  Sender: FDA-Public Use
  Company Number: US-BANPHARM-20142787

PATIENT
  Age: 67 Year
  Sex: Male
  Weight: 73.48 kg

DRUGS (5)
  1. ALEVE CAPLETS [Suspect]
     Active Substance: NAPROXEN SODIUM
     Indication: ARTHRITIS
     Dosage: 1 DF,
  2. CARDURA [Suspect]
     Active Substance: DOXAZOSIN MESYLATE
  3. ALEVE [Suspect]
     Active Substance: NAPROXEN SODIUM
     Indication: ARTHRITIS
     Dosage: 1 DF,
     Route: 048
     Dates: start: 201406
  4. LISINOPRIL. [Concomitant]
     Active Substance: LISINOPRIL
  5. FINASTERIDE. [Concomitant]
     Active Substance: FINASTERIDE

REACTIONS (2)
  - Retching [Recovered/Resolved]
  - Foreign body [Recovered/Resolved]

NARRATIVE: CASE EVENT DATE: 201406
